FAERS Safety Report 23339388 (Version 1)
Quarter: 2023Q4

REPORT INFORMATION
  Report Type: Spontaneous
  Country: FR (occurrence: FR)
  Receive Date: 20231226
  Receipt Date: 20231226
  Transmission Date: 20240110
  Serious: Yes (Hospitalization)
  Sender: FDA-Public Use
  Company Number: FR-ORGANON-O2311FRA002782

PATIENT
  Age: 93 Year
  Sex: Female

DRUGS (2)
  1. FOSAVANCE [Suspect]
     Active Substance: ALENDRONATE SODIUM\CHOLECALCIFEROL
     Indication: Osteoporosis
     Dosage: 1 DOSAGE FORM, QW (ONCE A WEEK)
     Route: 048
  2. FOSAVANCE [Suspect]
     Active Substance: ALENDRONATE SODIUM\CHOLECALCIFEROL
     Dosage: 1 DOSAGE FORM, QD (TOOK ONE TABLET A DAY FOR 7 DAYS)
     Route: 048

REACTIONS (3)
  - COVID-19 [Unknown]
  - Product prescribing error [Unknown]
  - Overdose [Unknown]
